FAERS Safety Report 12997882 (Version 8)
Quarter: 2018Q1

REPORT INFORMATION
  Report Type: Report from Study
  Country: US (occurrence: US)
  Receive Date: 20161205
  Receipt Date: 20180331
  Transmission Date: 20180508
  Serious: Yes (Life-Threatening, Hospitalization)
  Sender: FDA-Public Use
  Company Number: US-ROCHE-1858397

PATIENT
  Age: 66 Year
  Sex: Female
  Weight: 55.2 kg

DRUGS (66)
  1. BIOSOL (AMINO ACIDS) [Concomitant]
     Route: 048
  2. CEPACOL (UNITED STATES) [Concomitant]
     Indication: DRY MOUTH
     Dosage: DOSE: 1 UNIT
     Route: 048
     Dates: start: 20161123, end: 20161130
  3. LACTATED RINGERS SOLUTION [Concomitant]
     Active Substance: CALCIUM CHLORIDE\POTASSIUM CHLORIDE\SODIUM CHLORIDE\SODIUM LACTATE
     Indication: DEHYDRATION
     Route: 042
     Dates: start: 20161130, end: 20170208
  4. ZOFRAN [Concomitant]
     Active Substance: ONDANSETRON HYDROCHLORIDE
     Indication: VOMITING
  5. TIGAN [Concomitant]
     Active Substance: TRIMETHOBENZAMIDE HYDROCHLORIDE
     Indication: VOMITING
  6. REFRESH TEARS [Concomitant]
     Active Substance: CARBOXYMETHYLCELLULOSE SODIUM
     Dosage: DOSE 1 DROP?REPORTED AS: ARTIFICIAL TEARS
     Route: 047
     Dates: start: 20161231, end: 20170115
  7. BIOTIN [Concomitant]
     Active Substance: BIOTIN
     Route: 048
  8. DIFLUCAN [Concomitant]
     Active Substance: FLUCONAZOLE
     Indication: PROPHYLAXIS
     Dosage: DOSE: 1 OTHER
     Route: 065
     Dates: start: 20161212, end: 20170127
  9. DILAUDID [Concomitant]
     Active Substance: HYDROMORPHONE HYDROCHLORIDE
     Indication: PAIN
     Dosage: DOSE: 1 UNIT
     Route: 050
     Dates: start: 20161118, end: 20170210
  10. TORADOL [Concomitant]
     Active Substance: KETOROLAC TROMETHAMINE
     Indication: PAIN
     Route: 042
     Dates: start: 20161213, end: 20161219
  11. LIDOCAINE. [Concomitant]
     Active Substance: LIDOCAINE
     Indication: TACHYCARDIA
     Route: 061
     Dates: start: 20161129, end: 20170210
  12. ZOFRAN [Concomitant]
     Active Substance: ONDANSETRON HYDROCHLORIDE
     Indication: NAUSEA
     Route: 042
     Dates: start: 20161130, end: 20170210
  13. FAT EMULSION NOS [Concomitant]
     Active Substance: EGG PHOSPHOLIPIDS\SAFFLOWER OIL\SOYBEAN OIL
     Route: 042
     Dates: start: 20161123, end: 20170207
  14. TRANDATE [Concomitant]
     Active Substance: LABETALOL HYDROCHLORIDE
     Indication: HYPERTENSION
     Route: 042
     Dates: start: 20161130, end: 20161203
  15. REGLAN [Concomitant]
     Active Substance: METOCLOPRAMIDE HYDROCHLORIDE
     Indication: GASTROOESOPHAGEAL REFLUX DISEASE
     Route: 042
     Dates: start: 20161120, end: 20161123
  16. LOPRESSOR [Concomitant]
     Active Substance: METOPROLOL TARTRATE
     Indication: HYPERTENSION
     Route: 042
     Dates: start: 20161230, end: 20170101
  17. MIDAZOLAM [Concomitant]
     Active Substance: MIDAZOLAM HYDROCHLORIDE
     Dosage: DOSE: 1 UNIT?REPORTED AS: MIDAZOLAM (PF) VERSED
     Route: 042
     Dates: start: 20161130, end: 20170113
  18. PROTONIX [Concomitant]
     Active Substance: PANTOPRAZOLE SODIUM
     Indication: GASTROOESOPHAGEAL REFLUX DISEASE
     Route: 042
     Dates: start: 20161118, end: 20170209
  19. ZEMURON [Concomitant]
     Active Substance: ROCURONIUM BROMIDE
     Dosage: DOSE: 1 UNIT
     Route: 042
     Dates: start: 20161130, end: 20161212
  20. VASOSTRICT [Concomitant]
     Active Substance: VASOPRESSIN
     Dosage: 40 UNITS IN DEXTROSE 5% WATER
     Route: 042
     Dates: start: 20161229, end: 20170209
  21. BENADRYL [Concomitant]
     Active Substance: DIPHENHYDRAMINE HYDROCHLORIDE
     Indication: WOUND TREATMENT
     Route: 042
     Dates: start: 20161118, end: 20161130
  22. NORCO [Concomitant]
     Active Substance: ACETAMINOPHEN\HYDROCODONE BITARTRATE
     Indication: PAIN
     Dosage: DOSE: 1 UNIT (5-325 MG)
     Route: 050
     Dates: start: 20161130
  23. MAGNESIUM SULFATE. [Concomitant]
     Active Substance: MAGNESIUM SULFATE
     Dosage: REPORTED AS: MAGNESIUM SULFATE 2 G IN WATER 50 ML IVPB?DOSE: 1 UNIT
     Route: 042
     Dates: start: 20161119, end: 20170208
  24. FLAGYL [Concomitant]
     Active Substance: METRONIDAZOLE\METRONIDAZOLE HYDROCHLORIDE
     Indication: ABDOMINAL INFECTION
     Dosage: IN 100 ML NPB
     Route: 042
     Dates: start: 20161210, end: 20161213
  25. COMPAZINE [Concomitant]
     Active Substance: PROCHLORPERAZINE MALEATE
     Indication: NAUSEA
     Route: 042
     Dates: start: 20161228, end: 20161228
  26. PROPOFOL. [Concomitant]
     Active Substance: PROPOFOL
     Dosage: DOSE: 1 UNIT?REPORTED AS: PROPOFOL 1% 100ML IV
     Route: 042
     Dates: start: 20161130, end: 20161213
  27. ZOLOFT [Concomitant]
     Active Substance: SERTRALINE HYDROCHLORIDE
     Indication: DEPRESSION
     Route: 048
     Dates: start: 20161215, end: 20170115
  28. VANCOMYCIN [Concomitant]
     Active Substance: VANCOMYCIN
     Indication: PROPHYLAXIS
     Dosage: DOSE: 1 UNIT
     Route: 042
     Dates: start: 20161228, end: 20170209
  29. ATEZOLIZUMAB. [Suspect]
     Active Substance: ATEZOLIZUMAB
     Indication: NEOPLASM
     Dosage: MOST RECENT DOSE ADMINISTERED ON 07/NOV/2016.?STARTING DOSE AS PER PROTOCOL
     Route: 042
     Dates: start: 20160926
  30. BEVACIZUMAB. [Suspect]
     Active Substance: BEVACIZUMAB
     Indication: NEOPLASM
     Dosage: MOST RECENT DOSE OF 841.5 MG WAS ADMINISTERED ON 07/NOV/2016.?STARTING DOSE AS PER PROTOCOL
     Route: 042
     Dates: start: 20160926
  31. NOVOLOG [Concomitant]
     Active Substance: INSULIN ASPART
     Dosage: DOSE: 1 UNIT
     Route: 042
     Dates: start: 20161130, end: 20170210
  32. PRILOSEC [Concomitant]
     Active Substance: OMEPRAZOLE MAGNESIUM
     Indication: GASTROOESOPHAGEAL REFLUX DISEASE
     Route: 048
  33. HURRICAINE [Concomitant]
     Active Substance: BENZOCAINE
     Indication: DRY MOUTH
     Route: 048
     Dates: start: 20161120, end: 20161130
  34. DECADRON [Concomitant]
     Active Substance: DEXAMETHASONE
     Indication: INFLAMMATION
     Route: 050
     Dates: start: 20161130, end: 20170207
  35. FENTANYL. [Concomitant]
     Active Substance: FENTANYL
     Indication: PAIN
     Route: 042
     Dates: start: 20161130, end: 20170113
  36. ROBINUL [Concomitant]
     Active Substance: GLYCOPYRROLATE
     Dosage: DOSE: 0.2 UNITS
     Route: 042
     Dates: start: 20161212, end: 20161212
  37. ATIVAN [Concomitant]
     Active Substance: LORAZEPAM
     Indication: ANXIETY
     Route: 048
     Dates: start: 20161129, end: 20161228
  38. COMPAZINE [Concomitant]
     Active Substance: PROCHLORPERAZINE MALEATE
     Indication: VOMITING
  39. TIGAN [Concomitant]
     Active Substance: TRIMETHOBENZAMIDE HYDROCHLORIDE
     Indication: NAUSEA
     Route: 042
     Dates: start: 20161130, end: 20161130
  40. VANCOMYCIN [Concomitant]
     Active Substance: VANCOMYCIN
     Dosage: DOSE: 1 UNIT
     Route: 042
     Dates: start: 20161215, end: 20170104
  41. DEXTROSE/SODIUM CHLORIDE [Concomitant]
     Dosage: DOSE:1 OTHER
     Route: 042
     Dates: start: 20161213, end: 20170204
  42. LIPITOR [Concomitant]
     Active Substance: ATORVASTATIN CALCIUM
     Indication: HYPERLIPIDAEMIA
     Route: 048
  43. ALBUMIN HUMAN [Concomitant]
     Active Substance: ALBUMIN HUMAN
     Route: 042
     Dates: start: 20161130, end: 20161214
  44. DULCOLAX (BISACODYL) [Concomitant]
     Active Substance: BISACODYL
     Indication: CONSTIPATION
     Route: 050
     Dates: start: 20161119, end: 20170210
  45. MEFOXIN [Concomitant]
     Active Substance: CEFOXITIN SODIUM
     Route: 042
     Dates: start: 20161130, end: 20161130
  46. LEVONOX [Concomitant]
     Active Substance: ENOXAPARIN
     Indication: ANTICOAGULANT THERAPY
     Dosage: DOSE: 1 UNIT
     Route: 050
     Dates: start: 20161121, end: 20170210
  47. PEPCID (UNITED STATES) [Concomitant]
     Indication: GASTROOESOPHAGEAL REFLUX DISEASE
     Route: 050
     Dates: start: 20161120, end: 20170115
  48. LIDODERM [Concomitant]
     Active Substance: LIDOCAINE
     Indication: TACHYCARDIA
     Route: 058
     Dates: start: 20161201, end: 20170123
  49. MAGNESIUM OXIDE. [Concomitant]
     Active Substance: MAGNESIUM OXIDE
     Indication: ELECTROLYTE IMBALANCE
     Dosage: DOSE: 1 UNIT
     Route: 042
     Dates: start: 20170105, end: 20170114
  50. REMERON [Concomitant]
     Active Substance: MIRTAZAPINE
     Indication: DEPRESSION
     Route: 048
     Dates: start: 20161222
  51. NARCAN [Concomitant]
     Active Substance: NALOXONE HYDROCHLORIDE
     Indication: PROPHYLAXIS
     Dosage: DOSE: 1 UNIT
     Route: 042
     Dates: start: 20161130, end: 20161224
  52. KAYEXALATE [Concomitant]
     Active Substance: SODIUM POLYSTYRENE SULFONATE
     Route: 048
     Dates: start: 20161231, end: 20161231
  53. AMPICILLIN [Concomitant]
     Active Substance: AMPICILLIN
     Route: 042
     Dates: start: 20161130, end: 20161130
  54. CALCIUM CARBONATE. [Concomitant]
     Active Substance: CALCIUM CARBONATE
     Indication: ELECTROLYTE SUBSTITUTION THERAPY
     Route: 048
     Dates: start: 20170114, end: 20170115
  55. HEPARIN [Concomitant]
     Active Substance: HEPARIN SODIUM
     Indication: PROPHYLAXIS
     Dosage: DOSE: 5000 UNITS
     Route: 042
     Dates: start: 20161130, end: 20170209
  56. LIDOCAINE. [Concomitant]
     Active Substance: LIDOCAINE
     Dosage: DOSE: 1 UNIT
     Route: 048
     Dates: start: 20161129, end: 20161210
  57. DEMEROL [Concomitant]
     Active Substance: MEPERIDINE HYDROCHLORIDE
     Indication: PAIN
     Route: 042
     Dates: start: 20161130, end: 20161130
  58. NOREPINEPHRINE. [Concomitant]
     Active Substance: NOREPINEPHRINE
     Indication: HYPOTENSION
     Dosage: REPORTED AS: NOREPINEPHRINE 16MG IN 0.9% NACL
     Route: 042
     Dates: start: 20161228, end: 20170209
  59. NAPROSYN [Concomitant]
     Active Substance: NAPROXEN
     Indication: PAIN
     Route: 048
     Dates: start: 20161221, end: 20170123
  60. CIPRO [Concomitant]
     Active Substance: CIPROFLOXACIN HYDROCHLORIDE
     Route: 048
     Dates: start: 20170114, end: 20170127
  61. ACETAMINOPHEN. [Concomitant]
     Active Substance: ACETAMINOPHEN
     Indication: PAIN
     Route: 048
     Dates: start: 20161119, end: 20170115
  62. AUGMENTIN [Concomitant]
     Active Substance: AMOXICILLIN\CLAVULANATE POTASSIUM
     Dosage: DOSE: 1 OTHER
     Route: 050
     Dates: start: 20161221, end: 20170115
  63. DEXTROSE. [Concomitant]
     Active Substance: DEXTROSE
     Indication: DEHYDRATION
     Route: 042
     Dates: start: 20161130, end: 20170210
  64. XYLOCAINE [Concomitant]
     Active Substance: LIDOCAINE HYDROCHLORIDE
     Indication: TACHYCARDIA
     Dosage: DOSE: 1 UNIT
     Route: 042
     Dates: start: 20161130, end: 20170209
  65. IMODIUM [Concomitant]
     Active Substance: LOPERAMIDE HYDROCHLORIDE
     Indication: DIARRHOEA
     Dosage: DOSE: 1 UNIT
     Route: 048
     Dates: start: 20161216, end: 20161224
  66. ZOSYN [Concomitant]
     Active Substance: PIPERACILLIN SODIUM\TAZOBACTAM SODIUM
     Indication: PROPHYLAXIS
     Dosage: REPORTED AS: PIPERACILLIN-TAZOBACTAM (ZOSYN) 4.5G IN NACL 0.9%
     Route: 042
     Dates: start: 20161210, end: 20170209

REACTIONS (8)
  - Septic shock [Not Recovered/Not Resolved]
  - Abdominal infection [Not Recovered/Not Resolved]
  - Leukocytosis [Not Recovered/Not Resolved]
  - Peritonitis [Recovered/Resolved]
  - Hypoxia [Not Recovered/Not Resolved]
  - Wound drainage [Recovered/Resolved]
  - Small intestinal obstruction [Recovered/Resolved]
  - Enterocutaneous fistula [Not Recovered/Not Resolved]

NARRATIVE: CASE EVENT DATE: 20161116
